FAERS Safety Report 24118888 (Version 1)
Quarter: 2024Q3

REPORT INFORMATION
  Report Type: Report from Study
  Country: US (occurrence: US)
  Receive Date: 20240722
  Receipt Date: 20240722
  Transmission Date: 20241016
  Serious: Yes (Other)
  Sender: MYLAN
  Company Number: US-MYLANLABS-2024M1017844

PATIENT
  Sex: Female

DRUGS (2)
  1. ATORVASTATIN [Suspect]
     Active Substance: ATORVASTATIN
     Indication: Product used for unknown indication
     Dosage: UNK
     Route: 065
  2. VYNDAMAX [Suspect]
     Active Substance: TAFAMIDIS
     Indication: Product used for unknown indication
     Dosage: UNK
     Route: 065

REACTIONS (9)
  - Neuropathy peripheral [Unknown]
  - Blood disorder [Unknown]
  - Anaemia [Unknown]
  - Urinary tract infection [Unknown]
  - Haemorrhage [Unknown]
  - Spinal stenosis [Unknown]
  - Balance disorder [Unknown]
  - Myalgia [Unknown]
  - Drug interaction [Unknown]
